FAERS Safety Report 23601688 (Version 1)
Quarter: 2024Q1

REPORT INFORMATION
  Report Type: Spontaneous
  Country: JP (occurrence: JP)
  Receive Date: 20240306
  Receipt Date: 20240306
  Transmission Date: 20240410
  Serious: Yes (Other)
  Sender: FDA-Public Use
  Company Number: JP-PFIZER INC-PV202400022412

PATIENT
  Age: 54 Year
  Sex: Female

DRUGS (1)
  1. PAXLOVID [Suspect]
     Active Substance: NIRMATRELVIR\RITONAVIR
     Indication: COVID-19 treatment
     Dosage: [NIRMATRELVIR 300 MG]/[RITONAVIR 100 MG]; 2X/DAY
     Route: 048
     Dates: start: 20240213, end: 20240217

REACTIONS (4)
  - Thrombosis [Unknown]
  - Urticaria [Recovering/Resolving]
  - Peripheral swelling [Recovering/Resolving]
  - Dysgeusia [Recovered/Resolved]

NARRATIVE: CASE EVENT DATE: 20240201
